FAERS Safety Report 9140833 (Version 2)
Quarter: 2013Q1

REPORT INFORMATION
  Report Type: Spontaneous
  Country: FR (occurrence: FR)
  Receive Date: 20130305
  Receipt Date: 20130311
  Transmission Date: 20140127
  Serious: Yes (Death, Hospitalization)
  Sender: FDA-Public Use
  Company Number: FR-VERTEX PHARMACEUTICALS INC.-2013-003018

PATIENT
  Age: 65 Year
  Sex: Female

DRUGS (4)
  1. INCIVO [Suspect]
     Indication: HEPATITIS C
     Dosage: UNK, TID
     Route: 048
     Dates: start: 20120208
  2. VIRAFERON [Suspect]
     Indication: HEPATITIS C
     Dosage: DOSAGE FORM: UNKNOWN
     Route: 065
  3. REBETOL [Suspect]
     Indication: HEPATITIS C
     Dosage: DOSAGE FORM: UNKNOWN, DOSING= ^2-0-3^
     Route: 065
  4. ACID ALPHA GLUCOSIDASE [Suspect]
     Indication: PRODUCT USED FOR UNKNOWN INDICATION
     Dosage: DOSAGE FORM: UNSPECIFIED
     Route: 065

REACTIONS (2)
  - Peritonitis [Fatal]
  - Abdominal pain [Fatal]
